FAERS Safety Report 5297698-5 (Version None)
Quarter: 2007Q2

REPORT INFORMATION
  Report Type: 
  Country: None (occurrence: None)
  Receive Date: 20070412
  Receipt Date: 20070412
  Transmission Date: 20071010
  Serious: Yes (Hospitalization)
  Sender: FDA-Public Use
  Company Number: None

PATIENT
  Age: 65 Year
  Sex: Male
  Weight: 67 kg

DRUGS (1)
  1. GLEEVEC [Suspect]
     Indication: WALDENSTROM'S MACROGLOBULINAEMIA
     Dosage: 400MG PO QD
     Route: 048
     Dates: start: 20070312, end: 20070402

REACTIONS (3)
  - ANAEMIA [None]
  - COUGH [None]
  - PYREXIA [None]
